FAERS Safety Report 5073414-7 (Version None)
Quarter: 2006Q3

REPORT INFORMATION
  Report Type: 
  Country: None (occurrence: None)
  Receive Date: 20060717
  Receipt Date: 20060327
  Transmission Date: 20061208
  Serious: No
  Sender: FDA-Public Use
  Company Number: 2006000788

PATIENT
  Age: 74 Year
  Sex: Male
  Weight: 70.7611 kg

DRUGS (7)
  1. TARCEVA [Suspect]
     Indication: LUNG NEOPLASM MALIGNANT
     Dosage: 150 MG (QD), ORAL
     Route: 048
     Dates: start: 20060215, end: 20060308
  2. SPIRONOLACTONE [Concomitant]
  3. MULTIVITAMIN [Concomitant]
  4. COREG [Concomitant]
  5. LASIX [Concomitant]
  6. COUMADIN [Concomitant]
  7. LANOXIN [Concomitant]

REACTIONS (3)
  - ABDOMINAL PAIN UPPER [None]
  - CHEST PAIN [None]
  - DIARRHOEA [None]
